FAERS Safety Report 7459553-1 (Version None)
Quarter: 2011Q2

REPORT INFORMATION
  Report Type: 
  Country: None (occurrence: None)
  Receive Date: 20110505
  Receipt Date: 20110502
  Transmission Date: 20111010
  Serious: Yes (Hospitalization)
  Sender: FDA-Public Use
  Company Number: IT-BRISTOL-MYERS SQUIBB COMPANY-15712151

PATIENT
  Age: 75 Year
  Sex: Male

DRUGS (2)
  1. NORVASC [Suspect]
     Indication: BLOOD PRESSURE INCREASED
     Dosage: TABS
     Route: 048
     Dates: start: 20110401, end: 20110423
  2. COUMADIN [Suspect]
     Route: 048
     Dates: start: 20110401, end: 20110423

REACTIONS (2)
  - BLOOD PRESSURE FLUCTUATION [None]
  - EPISTAXIS [None]
